FAERS Safety Report 24737226 (Version 1)
Quarter: 2024Q4

REPORT INFORMATION
  Report Type: Spontaneous
  Country: US (occurrence: None)
  Receive Date: 20241213
  Receipt Date: 20241213
  Transmission Date: 20250115
  Serious: No
  Sender: Public
  Company Number: None

PATIENT
  Age: 57 Year
  Sex: Male

DRUGS (1)
  1. EMPAGLIFLOZIN [Suspect]
     Active Substance: EMPAGLIFLOZIN
     Indication: Diabetes mellitus
     Dosage: FREQUENCY : DAILY;?
     Dates: start: 20220407, end: 20240730

REACTIONS (5)
  - Acidosis [None]
  - Dehydration [None]
  - Malaise [None]
  - Lethargy [None]
  - Tachycardia [None]

NARRATIVE: CASE EVENT DATE: 20240727
